FAERS Safety Report 7935895-8 (Version None)
Quarter: 2011Q4

REPORT INFORMATION
  Report Type: 
  Country: None (occurrence: None)
  Receive Date: 20111121
  Receipt Date: 20111102
  Transmission Date: 20120403
  Serious: Yes (Death, Hospitalization)
  Sender: FDA-Public Use
  Company Number: COL_10224_2011

PATIENT
  Sex: Male

DRUGS (3)
  1. MERIDOL MED CHX 0, 2 % (CHLORHEXIDINE DIGLUCONATE 2 MG/ML OROMUCOSAL S [Suspect]
     Indication: MUCOSAL INFLAMMATION
     Dosage: ORAL
     Route: 048
     Dates: start: 20110129, end: 20110101
  2. MERIDOL MED CHX 0, 2 % (CHLORHEXIDINE DIGLUCONATE 2 MG/ML OROMUCOSAL S [Suspect]
     Indication: GINGIVITIS
     Dosage: ORAL
     Route: 048
     Dates: start: 20110129, end: 20110101
  3. MERIDOL MED CHX 0, 2 % (CHLORHEXIDINE DIGLUCONATE 2 MG/ML OROMUCOSAL S [Suspect]
     Indication: POSTOPERATIVE WOUND INFECTION
     Dosage: ORAL
     Route: 048
     Dates: start: 20110129, end: 20110101

REACTIONS (1)
  - PRODUCT QUALITY ISSUE [None]
